FAERS Safety Report 20950690 (Version 3)
Quarter: 2025Q1

REPORT INFORMATION
  Report Type: Spontaneous
  Country: DE (occurrence: DE)
  Receive Date: 20220613
  Receipt Date: 20250129
  Transmission Date: 20250409
  Serious: Yes (Other)
  Sender: TAKEDA
  Company Number: DE-PEI-202200115579

PATIENT
  Age: 65 Year
  Sex: Female

DRUGS (31)
  1. ALBUMIN HUMAN [Suspect]
     Active Substance: ALBUMIN HUMAN
     Indication: Graft versus host disease in gastrointestinal tract
  2. ALBUMIN HUMAN [Suspect]
     Active Substance: ALBUMIN HUMAN
  3. ALBUMIN HUMAN [Suspect]
     Active Substance: ALBUMIN HUMAN
  4. GAMUNEX [Suspect]
     Active Substance: HUMAN IMMUNOGLOBULIN G
     Indication: Product used for unknown indication
  5. GAMUNEX [Suspect]
     Active Substance: HUMAN IMMUNOGLOBULIN G
  6. GAMUNEX [Suspect]
     Active Substance: HUMAN IMMUNOGLOBULIN G
  7. GAMUNEX [Suspect]
     Active Substance: HUMAN IMMUNOGLOBULIN G
  8. GAMUNEX [Suspect]
     Active Substance: HUMAN IMMUNOGLOBULIN G
  9. GAMUNEX [Suspect]
     Active Substance: HUMAN IMMUNOGLOBULIN G
  10. GAMUNEX [Suspect]
     Active Substance: HUMAN IMMUNOGLOBULIN G
  11. GAMUNEX [Suspect]
     Active Substance: HUMAN IMMUNOGLOBULIN G
  12. GAMUNEX [Suspect]
     Active Substance: HUMAN IMMUNOGLOBULIN G
  13. GAMUNEX [Suspect]
     Active Substance: HUMAN IMMUNOGLOBULIN G
  14. GAMUNEX [Suspect]
     Active Substance: HUMAN IMMUNOGLOBULIN G
  15. GAMUNEX [Suspect]
     Active Substance: HUMAN IMMUNOGLOBULIN G
  16. GAMUNEX [Suspect]
     Active Substance: HUMAN IMMUNOGLOBULIN G
  17. GAMUNEX [Suspect]
     Active Substance: HUMAN IMMUNOGLOBULIN G
  18. GAMUNEX [Suspect]
     Active Substance: HUMAN IMMUNOGLOBULIN G
  19. GAMUNEX [Suspect]
     Active Substance: HUMAN IMMUNOGLOBULIN G
  20. GAMUNEX [Suspect]
     Active Substance: HUMAN IMMUNOGLOBULIN G
  21. GAMUNEX [Suspect]
     Active Substance: HUMAN IMMUNOGLOBULIN G
  22. GAMUNEX [Suspect]
     Active Substance: HUMAN IMMUNOGLOBULIN G
  23. GAMUNEX [Suspect]
     Active Substance: HUMAN IMMUNOGLOBULIN G
  24. GAMUNEX [Suspect]
     Active Substance: HUMAN IMMUNOGLOBULIN G
  25. GAMUNEX [Suspect]
     Active Substance: HUMAN IMMUNOGLOBULIN G
  26. FACTOR XIII CONCENTRATE (HUMAN) [Suspect]
     Active Substance: FACTOR XIII CONCENTRATE (HUMAN)
     Indication: Product used for unknown indication
  27. FACTOR XIII CONCENTRATE (HUMAN) [Suspect]
     Active Substance: FACTOR XIII CONCENTRATE (HUMAN)
  28. FACTOR XIII CONCENTRATE (HUMAN) [Suspect]
     Active Substance: FACTOR XIII CONCENTRATE (HUMAN)
  29. FACTOR XIII CONCENTRATE (HUMAN) [Suspect]
     Active Substance: FACTOR XIII CONCENTRATE (HUMAN)
  30. FACTOR XIII CONCENTRATE (HUMAN) [Suspect]
     Active Substance: FACTOR XIII CONCENTRATE (HUMAN)
  31. HAEMOCOMPLETTAN P [Suspect]
     Active Substance: FIBRINOGEN HUMAN
     Indication: Product used for unknown indication

REACTIONS (1)
  - Hepatitis B [Unknown]

NARRATIVE: CASE EVENT DATE: 20210803
